FAERS Safety Report 4732125-5 (Version None)
Quarter: 2005Q3

REPORT INFORMATION
  Report Type: 
  Country: None (occurrence: None)
  Receive Date: 20050725
  Receipt Date: 19950512
  Transmission Date: 20060218
  Serious: Yes (Other)
  Sender: FDA-Public Use
  Company Number: KII-1995-0015114

PATIENT

DRUGS (2)
  1. MORPHINE SULFATE [Suspect]
  2. DURAGESIC-100 [Suspect]

REACTIONS (1)
  - POLYSUBSTANCE ABUSE [None]
